FAERS Safety Report 23602968 (Version 2)
Quarter: 2024Q1

REPORT INFORMATION
  Report Type: Report from Study
  Country: GR (occurrence: GR)
  Receive Date: 20240306
  Receipt Date: 20240310
  Transmission Date: 20240409
  Serious: Yes (Other)
  Sender: FDA-Public Use
  Company Number: GR-ABBVIE-5639242

PATIENT
  Age: 75 Year
  Sex: Female

DRUGS (4)
  1. CARBIDOPA\LEVODOPA [Suspect]
     Active Substance: CARBIDOPA\LEVODOPA
     Indication: Parkinson^s disease
     Dosage: MORNING DOSE: 6.3ML; CONTINUOUS RATE: 1.5ML/H; EXTRA DOSE: 1.0ML
     Route: 050
     Dates: start: 20190507
  2. CARBIDOPA\LEVODOPA [Suspect]
     Active Substance: CARBIDOPA\LEVODOPA
     Dosage: MORNING DOSE: 6.0ML; CONTINUOUS RATE: 1.5ML/H; EXTRA DOSE: 1.0ML
     Route: 050
  3. CARBIDOPA\LEVODOPA [Suspect]
     Active Substance: CARBIDOPA\LEVODOPA
     Dosage: MORNING DOSE: 5.8ML; CONTINUOUS RATE: 1.6ML/H; EXTRA DOSE: 1.0ML
     Route: 050
  4. SINTROM [Concomitant]
     Active Substance: ACENOCOUMAROL
     Indication: Product used for unknown indication
     Route: 048

REACTIONS (7)
  - Gastrointestinal mucosa hyperaemia [Not Recovered/Not Resolved]
  - Device dislocation [Unknown]
  - Stoma site pain [Unknown]
  - Abdominal discomfort [Not Recovered/Not Resolved]
  - Bezoar [Recovered/Resolved]
  - Small intestinal haemorrhage [Not Recovered/Not Resolved]
  - Device kink [Recovered/Resolved]

NARRATIVE: CASE EVENT DATE: 20240209
